FAERS Safety Report 15749748 (Version 1)
Quarter: 2018Q4

REPORT INFORMATION
  Report Type: Spontaneous
  Country: FR (occurrence: FR)
  Receive Date: 20181221
  Receipt Date: 20181221
  Transmission Date: 20190205
  Serious: Yes (Hospitalization)
  Sender: FDA-Public Use
  Company Number: FR-BEH-2018097808

PATIENT
  Age: 40 Year
  Sex: Male
  Weight: 96 kg

DRUGS (2)
  1. MABTHERA [Suspect]
     Active Substance: RITUXIMAB
     Indication: ORGAN TRANSPLANT
     Dosage: 750 ?G, QMT
     Route: 041
     Dates: start: 20181204, end: 20181204
  2. PRIVIGEN [Suspect]
     Active Substance: HUMAN IMMUNOGLOBULIN G
     Indication: ORGAN TRANSPLANT
     Dosage: 30 G, QMT
     Route: 041
     Dates: start: 20181205, end: 20181208

REACTIONS (4)
  - Nausea [Not Recovered/Not Resolved]
  - Pyrexia [Not Recovered/Not Resolved]
  - Vomiting [Not Recovered/Not Resolved]
  - Ascites [Not Recovered/Not Resolved]

NARRATIVE: CASE EVENT DATE: 20181206
